FAERS Safety Report 8795587 (Version 1)
Quarter: 2012Q4

REPORT INFORMATION
  Report Type: 
  Country: AU (occurrence: AU)
  Receive Date: 20120919
  Receipt Date: 20120919
  Transmission Date: 20130627
  Serious: Yes (Life-Threatening)
  Sender: FDA-Public Use
  Company Number: AU-JNJFOC-20120907668

PATIENT
  Age: 43 Year
  Sex: Male

DRUGS (5)
  1. PREZISTA [Suspect]
     Indication: PRODUCT USED FOR UNKNOWN INDICATION
     Route: 048
     Dates: end: 20110507
  2. QUETIAPINE [Interacting]
     Indication: PRODUCT USED FOR UNKNOWN INDICATION
     Route: 048
     Dates: start: 20100401, end: 20110507
  3. RITONAVIR [Interacting]
     Indication: PRODUCT USED FOR UNKNOWN INDICATION
     Route: 065
     Dates: end: 20110507
  4. VALDOXAN (AGOMELATINE) [Concomitant]
     Route: 065
  5. TRUVADA [Concomitant]
     Route: 065

REACTIONS (5)
  - Loss of consciousness [Recovered/Resolved]
  - Drug interaction [Recovered/Resolved]
  - Atrioventricular block first degree [Recovered/Resolved]
  - Circulatory collapse [Recovered/Resolved]
  - Blood creatine phosphokinase increased [Recovered/Resolved]
